FAERS Safety Report 9484012 (Version 2)
Quarter: 2013Q3

REPORT INFORMATION
  Report Type: Spontaneous
  Country: CA (occurrence: CA)
  Receive Date: 20130828
  Receipt Date: 20130828
  Transmission Date: 20140515
  Serious: Yes (Hospitalization)
  Sender: FDA-Public Use
  Company Number: CA-AMGEN-KDL347760

PATIENT
  Age: 2 Year
  Sex: Female
  Weight: 12.7 kg

DRUGS (9)
  1. ENBREL [Suspect]
     Indication: JUVENILE IDIOPATHIC ARTHRITIS
     Dosage: UNK UNK, 2 TIMES/WK
     Route: 065
     Dates: start: 20081019
  2. ACETAMINOPHEN/CODEINE [Concomitant]
     Dosage: UNK UNK, UNK
  3. CALCIUM [Concomitant]
     Dosage: UNK UNK, UNK
  4. FOLIC ACID [Concomitant]
     Dosage: UNK UNK, UNK
  5. LANSOPRAZOLE [Concomitant]
     Dosage: UNK UNK, UNK
  6. NAPROXEN [Concomitant]
     Dosage: UNK UNK, UNK
  7. METHOTREXATE [Concomitant]
     Dosage: UNK UNK, UNK
     Route: 058
  8. PREDNISONE [Concomitant]
     Dosage: UNK UNK, UNK
  9. IRON [Concomitant]

REACTIONS (2)
  - Scarlet fever [Not Recovered/Not Resolved]
  - Rheumatoid arthritis [Not Recovered/Not Resolved]
